FAERS Safety Report 23939569 (Version 1)
Quarter: 2024Q2

REPORT INFORMATION
  Report Type: Report from Study
  Country: US (occurrence: US)
  Receive Date: 20240605
  Receipt Date: 20240605
  Transmission Date: 20240716
  Serious: Yes (Disabling)
  Sender: FDA-Public Use
  Company Number: US-SA-SAC20240603000944

PATIENT
  Age: 60 Year
  Sex: Female

DRUGS (1)
  1. ALGLUCOSIDASE ALFA [Suspect]
     Active Substance: ALGLUCOSIDASE ALFA
     Indication: Glycogen storage disease type II
     Dosage: 2050 (UNIT UNSPECIFIED), QW
     Route: 042
     Dates: start: 20160330

REACTIONS (6)
  - Mobility decreased [Not Recovered/Not Resolved]
  - Pain [Unknown]
  - Fall [Unknown]
  - Muscular weakness [Unknown]
  - Therapeutic product effect decreased [Unknown]
  - Inappropriate schedule of product administration [Unknown]

NARRATIVE: CASE EVENT DATE: 20160330
